FAERS Safety Report 7619681-4 (Version None)
Quarter: 2011Q3

REPORT INFORMATION
  Report Type: 
  Country: None (occurrence: None)
  Receive Date: 20110719
  Receipt Date: 20110712
  Transmission Date: 20111222
  Serious: Yes (Other)
  Sender: FDA-Public Use
  Company Number: FR-BAYER-2011-049409

PATIENT
  Age: 35 Year
  Sex: Female
  Weight: 48.073 kg

DRUGS (1)
  1. MIRENA [Suspect]
     Dosage: 20 ?G, CONT
     Route: 015
     Dates: start: 20100501, end: 20110301

REACTIONS (2)
  - URINARY TRACT INFECTION [None]
  - AMENORRHOEA [None]
